FAERS Safety Report 14935637 (Version 1)
Quarter: 2018Q2

REPORT INFORMATION
  Report Type: Spontaneous
  Country: US (occurrence: US)
  Receive Date: 20180524
  Receipt Date: 20180524
  Transmission Date: 20180711
  Serious: No
  Sender: FDA-Public Use
  Company Number: US-TEVA-2018-US-893757

PATIENT
  Age: 58 Year
  Sex: Female

DRUGS (2)
  1. CLONAZEPAM. [Suspect]
     Active Substance: CLONAZEPAM
     Route: 065
     Dates: start: 2004
  2. CLONAZEPAM. [Suspect]
     Active Substance: CLONAZEPAM
     Route: 065
     Dates: start: 20180429

REACTIONS (7)
  - Drug ineffective [Unknown]
  - Impaired work ability [Unknown]
  - Feeling cold [Unknown]
  - Incorrect dose administered [Unknown]
  - Memory impairment [Unknown]
  - Fear [Unknown]
  - Abnormal behaviour [Unknown]
